FAERS Safety Report 5355949-2 (Version None)
Quarter: 2007Q2

REPORT INFORMATION
  Report Type: 
  Country: None (occurrence: None)
  Receive Date: 20070613
  Receipt Date: 20070601
  Transmission Date: 20071010
  Serious: Yes (Other)
  Sender: FDA-Public Use
  Company Number: JP-SANOFI-SYNTHELABO-A01200706163

PATIENT
  Age: 16 Year
  Sex: Male
  Weight: 67 kg

DRUGS (2)
  1. DOGMATYL [Suspect]
     Indication: DRUG USE FOR UNKNOWN INDICATION
     Route: 048
  2. MYSLEE [Suspect]
     Route: 048

REACTIONS (3)
  - ACCIDENTAL OVERDOSE [None]
  - AMNESIA [None]
  - ROAD TRAFFIC ACCIDENT [None]
